FAERS Safety Report 19966372 (Version 1)
Quarter: 2021Q4

REPORT INFORMATION
  Report Type: Spontaneous
  Country: FR (occurrence: FR)
  Receive Date: 20211019
  Receipt Date: 20211019
  Transmission Date: 20220303
  Serious: Yes (Other)
  Sender: FDA-Public Use
  Company Number: FR-AFSSAPS-DJ20213787

PATIENT
  Age: 91 Year
  Sex: Male

DRUGS (3)
  1. AMOXICILLIN [Suspect]
     Active Substance: AMOXICILLIN
     Indication: Intervertebral discitis
     Dosage: 12 GRAM, ONCE A DAY
     Route: 041
     Dates: start: 20210708, end: 20210716
  2. AMOXICILLIN [Suspect]
     Active Substance: AMOXICILLIN
     Dosage: 9 GRAM, ONCE A DAY
     Route: 048
     Dates: start: 20210716, end: 20210728
  3. AMOXICILLIN [Suspect]
     Active Substance: AMOXICILLIN
     Dosage: 9 GRAM, ONCE A DAY
     Route: 041
     Dates: start: 20210728, end: 20210803

REACTIONS (1)
  - Confusional state [Recovered/Resolved]

NARRATIVE: CASE EVENT DATE: 20210723
